FAERS Safety Report 7905296-7 (Version None)
Quarter: 2011Q4

REPORT INFORMATION
  Report Type: 
  Country: None (occurrence: None)
  Receive Date: 20111109
  Receipt Date: 20100113
  Transmission Date: 20120403
  Serious: Yes (Death, Hospitalization)
  Sender: FDA-Public Use
  Company Number: PHHY2011TW32663

PATIENT
  Sex: Male

DRUGS (4)
  1. GLEEVEC [Suspect]
     Indication: CHRONIC MYELOID LEUKAEMIA
     Dosage: 300 MG,DAILY
     Route: 048
  2. GLEEVEC [Suspect]
     Dosage: 200 MG, UNK
     Route: 048
  3. GLEEVEC [Suspect]
     Dosage: 400 MG, UNK
     Route: 048
  4. GLEEVEC [Suspect]
     Dosage: 250 MG, UNK
     Route: 048

REACTIONS (4)
  - WHITE BLOOD CELL COUNT DECREASED [None]
  - DEVICE OCCLUSION [None]
  - HYPERKALAEMIA [None]
  - ACIDOSIS [None]
